FAERS Safety Report 8952894 (Version 1)
Quarter: 2012Q4

REPORT INFORMATION
  Report Type: 
  Country: US (occurrence: US)
  Receive Date: 20121203
  Receipt Date: 20121203
  Transmission Date: 20130627
  Serious: No
  Sender: FDA-Public Use
  Company Number: US-009507513-1211USA010852

PATIENT
  Age: 50 None
  Sex: Male

DRUGS (3)
  1. PEGINTRON [Suspect]
     Indication: HEPATITIS C
     Dosage: 120 Microgram, qw
     Route: 058
     Dates: start: 20120730
  2. REBETOL [Suspect]
  3. IBUPROFEN [Concomitant]

REACTIONS (4)
  - Mood altered [Not Recovered/Not Resolved]
  - Pain [Not Recovered/Not Resolved]
  - Product quality issue [Unknown]
  - Drug dose omission [Unknown]
